FAERS Safety Report 16282504 (Version 1)
Quarter: 2019Q2

REPORT INFORMATION
  Report Type: Spontaneous
  Country: JP (occurrence: JP)
  Receive Date: 20190507
  Receipt Date: 20190507
  Transmission Date: 20190711
  Serious: Yes (Disabling, Other)
  Sender: FDA-Public Use
  Company Number: JP-PFIZER INC-2018487097

PATIENT
  Age: 48 Year
  Sex: Male
  Weight: 120 kg

DRUGS (16)
  1. LYRICA [Suspect]
     Active Substance: PREGABALIN
     Dosage: 75 MG, TWICE A DAY (AT MORNING AND EVENING)
     Route: 048
     Dates: start: 20180907, end: 20180922
  2. PROTECADIN [Concomitant]
     Active Substance: LAFUTIDINE
     Dosage: UNK
     Dates: start: 20180512
  3. SHAKUYAKUKANZOTO [Concomitant]
     Active Substance: HERBALS
     Dosage: UNK, 2X/DAY (THE MORNING AND EVENING )
     Route: 048
     Dates: start: 20180828, end: 20180904
  4. EPERISONE HYDROCHLORIDE [Concomitant]
     Active Substance: EPERISONE HYDROCHLORIDE
     Dosage: UNK
     Route: 048
     Dates: start: 20171216, end: 20180116
  5. CELECOX [Concomitant]
     Active Substance: CELECOXIB
     Dosage: UNK
     Route: 048
     Dates: start: 20180922, end: 20180926
  6. LYRICA [Suspect]
     Active Substance: PREGABALIN
     Indication: NECK PAIN
     Dosage: 50 MG, TWICE A DAY (AT MORNING AND EVENING)
     Route: 048
     Dates: start: 20180116, end: 20180130
  7. LYRICA [Suspect]
     Active Substance: PREGABALIN
     Dosage: 75 MG, TWICE A DAY
     Route: 048
     Dates: start: 20180320, end: 20180904
  8. LYRICA [Suspect]
     Active Substance: PREGABALIN
     Dosage: 175 MG, DAILY (75 MG IN THE MORNING 100 MG IN THE EVENING)
     Route: 048
     Dates: start: 20180904, end: 20180907
  9. LOXOPROFEN SODIUM [Suspect]
     Active Substance: LOXOPROFEN SODIUM
     Indication: NECK PAIN
     Dosage: 60 MG, 3X/DAY
     Route: 048
     Dates: start: 20171216, end: 20180515
  10. CYTOTEC [Concomitant]
     Active Substance: MISOPROSTOL
     Dosage: UNK
     Route: 048
     Dates: start: 20180922, end: 20180926
  11. MECOBALAMIN [Concomitant]
     Active Substance: METHYLCOBALAMIN
     Dosage: UNK
     Route: 048
     Dates: start: 20180926, end: 20181002
  12. GOREISAN [Concomitant]
     Active Substance: HERBALS
     Dosage: UNK
     Route: 048
     Dates: start: 20180926
  13. LYRICA [Suspect]
     Active Substance: PREGABALIN
     Dosage: 225 MG, DAILY (75 MG IN THE MORNING 150 MG IN THE EVENING)
     Route: 048
     Dates: start: 20180313, end: 20180320
  14. CYMBALTA [Suspect]
     Active Substance: DULOXETINE HYDROCHLORIDE
     Indication: NECK PAIN
     Dosage: 20 MG, ONCE A DAY (AT EVENING)
     Route: 048
     Dates: start: 20180828, end: 20180904
  15. BETAHISTINE MESILATE [Concomitant]
     Active Substance: BETAHISTINE MESILATE
     Dosage: UNK
     Route: 048
     Dates: start: 20181002, end: 20181016
  16. LYRICA [Suspect]
     Active Substance: PREGABALIN
     Dosage: 75 MG, TWICE A DAY (AT MORNING AND EVENING)
     Route: 048
     Dates: start: 20180130, end: 20180313

REACTIONS (12)
  - Somnolence [Not Recovered/Not Resolved]
  - Chronic gastritis [Recovering/Resolving]
  - Vision blurred [Recovering/Resolving]
  - Nausea [Not Recovered/Not Resolved]
  - Sleep apnoea syndrome [Not Recovered/Not Resolved]
  - Hypoacusis [Recovering/Resolving]
  - Dizziness [Not Recovered/Not Resolved]
  - Swelling [Recovering/Resolving]
  - Product use in unapproved indication [Unknown]
  - Hypertension [Recovering/Resolving]
  - Irritable bowel syndrome [Recovering/Resolving]
  - Gastrooesophageal reflux disease [Recovering/Resolving]

NARRATIVE: CASE EVENT DATE: 20180116
